FAERS Safety Report 18957241 (Version 1)
Quarter: 2021Q1

REPORT INFORMATION
  Report Type: Spontaneous
  Country: US (occurrence: US)
  Receive Date: 20210302
  Receipt Date: 20210302
  Transmission Date: 20210420
  Serious: Yes (Other)
  Sender: FDA-Public Use
  Company Number: US-LUPIN PHARMACEUTICALS INC.-2021-02477

PATIENT
  Age: 32 Year
  Sex: Female

DRUGS (14)
  1. TOPIRAMATE. [Suspect]
     Active Substance: TOPIRAMATE
     Indication: OCCIPITAL NEURALGIA
     Dosage: UNK
     Route: 065
  2. NORTRIPTYLINE [Suspect]
     Active Substance: NORTRIPTYLINE
     Indication: GENERALISED ANXIETY DISORDER
  3. GABAPENTIN. [Suspect]
     Active Substance: GABAPENTIN
     Indication: OCCIPITAL NEURALGIA
     Dosage: UNK
     Route: 065
  4. GABAPENTIN. [Suspect]
     Active Substance: GABAPENTIN
     Indication: GENERALISED ANXIETY DISORDER
  5. RIBOFLAVIN [Suspect]
     Active Substance: RIBOFLAVIN
     Indication: OCCIPITAL NEURALGIA
     Dosage: UNK
     Route: 048
  6. MAGNESIUM [Concomitant]
     Active Substance: MAGNESIUM
     Indication: OCCIPITAL NEURALGIA
     Dosage: UNK
     Route: 048
  7. ESCITALOPRAM [Suspect]
     Active Substance: ESCITALOPRAM OXALATE
     Indication: OCCIPITAL NEURALGIA
     Dosage: UNK
     Route: 065
  8. ESCITALOPRAM [Suspect]
     Active Substance: ESCITALOPRAM OXALATE
     Indication: GENERALISED ANXIETY DISORDER
  9. MAGNESIUM [Concomitant]
     Active Substance: MAGNESIUM
     Indication: GENERALISED ANXIETY DISORDER
  10. TOPIRAMATE. [Suspect]
     Active Substance: TOPIRAMATE
     Indication: GENERALISED ANXIETY DISORDER
  11. NORTRIPTYLINE [Suspect]
     Active Substance: NORTRIPTYLINE
     Indication: OCCIPITAL NEURALGIA
     Dosage: UNK
     Route: 065
  12. RIBOFLAVIN [Suspect]
     Active Substance: RIBOFLAVIN
     Indication: GENERALISED ANXIETY DISORDER
  13. AMITRIPTYLINE [Suspect]
     Active Substance: AMITRIPTYLINE
     Indication: GENERALISED ANXIETY DISORDER
  14. AMITRIPTYLINE [Suspect]
     Active Substance: AMITRIPTYLINE
     Indication: OCCIPITAL NEURALGIA
     Dosage: UNK
     Route: 065

REACTIONS (1)
  - Drug ineffective [Unknown]
